FAERS Safety Report 9670658 (Version 2)
Quarter: 2013Q4

REPORT INFORMATION
  Report Type: Spontaneous
  Country: US (occurrence: US)
  Receive Date: 20131106
  Receipt Date: 20131202
  Transmission Date: 20140711
  Serious: Yes (Death)
  Sender: FDA-Public Use
  Company Number: US-BRISTOL-MYERS SQUIBB COMPANY-19710029

PATIENT
  Age: 66 Year
  Sex: Male
  Weight: 95.24 kg

DRUGS (2)
  1. COUMADIN [Suspect]
     Route: 048
     Dates: start: 1999
  2. DEXTROMETHORPHAN + GUAIFENESIN [Suspect]
     Indication: PULMONARY CONGESTION
     Route: 048
     Dates: start: 201207, end: 20130923

REACTIONS (3)
  - Death [Fatal]
  - Epistaxis [Unknown]
  - International normalised ratio fluctuation [Unknown]
